FAERS Safety Report 8519735-4 (Version None)
Quarter: 2012Q3

REPORT INFORMATION
  Report Type: 
  Country: None (occurrence: None)
  Receive Date: 20120719
  Receipt Date: 20120710
  Transmission Date: 20120928
  Serious: Yes (Hospitalization, Other)
  Sender: FDA-Public Use
  Company Number: US-BIOGENIDEC-2012BI024703

PATIENT
  Sex: Female

DRUGS (3)
  1. AVONEX [Suspect]
     Route: 030
     Dates: start: 20030101, end: 20120601
  2. AVONEX [Suspect]
     Indication: MULTIPLE SCLEROSIS
     Route: 030
     Dates: start: 19990501, end: 20020501
  3. AVONEX [Suspect]
     Route: 030
     Dates: start: 20120623

REACTIONS (21)
  - MULTIPLE SCLEROSIS RELAPSE [None]
  - BLOOD PRESSURE FLUCTUATION [None]
  - UPPER LIMB FRACTURE [None]
  - LIMB INJURY [None]
  - DEHYDRATION [None]
  - MUSCULOSKELETAL DISORDER [None]
  - VISUAL IMPAIRMENT [None]
  - SLEEP APNOEA SYNDROME [None]
  - CEREBROVASCULAR ACCIDENT [None]
  - VIRAL INFECTION [None]
  - DILATATION VENTRICULAR [None]
  - CONVULSION [None]
  - GRAND MAL CONVULSION [None]
  - FALL [None]
  - HERPES ZOSTER [None]
  - MUSCULOSKELETAL STIFFNESS [None]
  - OEDEMA PERIPHERAL [None]
  - NEUROPATHY PERIPHERAL [None]
  - PERIPHERAL COLDNESS [None]
  - GAIT DISTURBANCE [None]
  - ASTHMA [None]
